FAERS Safety Report 6756809-2 (Version None)
Quarter: 2010Q2

REPORT INFORMATION
  Report Type: 
  Country: None (occurrence: None)
  Receive Date: 20100604
  Receipt Date: 20100528
  Transmission Date: 20101027
  Serious: Yes (Hospitalization)
  Sender: FDA-Public Use
  Company Number: DE-ELI_LILLY_AND_COMPANY-DE201005007886

PATIENT
  Age: 57 Year
  Sex: Male

DRUGS (7)
  1. BYETTA [Suspect]
     Dosage: UNK, UNKNOWN
     Route: 058
  2. ASPIRIN [Concomitant]
     Dosage: UNK, UNKNOWN
     Route: 065
  3. LISINOPRIL [Concomitant]
     Dosage: UNK, UNKNOWN
     Route: 065
  4. METFORMIN [Concomitant]
     Dosage: UNK, UNKNOWN
     Route: 065
  5. NITRANGIN [Concomitant]
     Dosage: UNK, UNKNOWN
     Route: 065
  6. PENTAERYTHRITOL TETRANITRATE [Concomitant]
     Dosage: UNK, UNKNOWN
     Route: 065
  7. SIMVA [Concomitant]
     Dosage: UNK, UNKNOWN
     Route: 065

REACTIONS (1)
  - BLADDER CANCER [None]
